FAERS Safety Report 5781981-0 (Version None)
Quarter: 2008Q2

REPORT INFORMATION
  Report Type: 
  Country: None (occurrence: None)
  Receive Date: 20080623
  Receipt Date: 20080612
  Transmission Date: 20081010
  Serious: Yes (Hospitalization)
  Sender: FDA-Public Use
  Company Number: CH-ROCHE-230111

PATIENT
  Age: 61 Year
  Sex: Male
  Weight: 84 kg

DRUGS (4)
  1. XENICAL [Suspect]
     Indication: OBESITY
     Route: 048
     Dates: start: 19990611, end: 19990708
  2. NEORAL [Interacting]
     Indication: DRUG USE FOR UNKNOWN INDICATION
     Dosage: DOSAGE: 150-190 DUE TO TROUGH LEVEL
     Route: 065
  3. FENOFIBRATE [Concomitant]
     Dates: start: 19990611
  4. ATORVASTATIN [Concomitant]
     Dates: start: 19990611

REACTIONS (3)
  - DRUG INTERACTION [None]
  - DRUG LEVEL DECREASED [None]
  - TRANSPLANT REJECTION [None]
